FAERS Safety Report 21569199 (Version 1)
Quarter: 2022Q4

REPORT INFORMATION
  Report Type: Spontaneous
  Country: ES (occurrence: ES)
  Receive Date: 20221109
  Receipt Date: 20221109
  Transmission Date: 20230112
  Serious: Yes (Other)
  Sender: FDA-Public Use
  Company Number: ES-SUN PHARMACEUTICAL INDUSTRIES LTD-2022RR-362676

PATIENT
  Age: 86 Year
  Sex: Female

DRUGS (5)
  1. CIPROFLOXACIN [Suspect]
     Active Substance: CIPROFLOXACIN
     Indication: Medical device site joint infection
     Dosage: UNK
     Route: 065
  2. LEVOFLOXACIN [Suspect]
     Active Substance: LEVOFLOXACIN
     Indication: Medical device site joint infection
     Dosage: UNK
     Route: 065
  3. GENTAMICIN [Suspect]
     Active Substance: GENTAMICIN
     Indication: Medical device site joint infection
     Dosage: UNK
     Route: 065
  4. CLINDAMYCIN [Suspect]
     Active Substance: CLINDAMYCIN
     Indication: Medical device site joint infection
     Dosage: UNK
     Route: 065
  5. PENICILLIN [Suspect]
     Active Substance: PENICILLIN
     Indication: Medical device site joint infection
     Dosage: UNK
     Route: 065

REACTIONS (1)
  - Disease recurrence [Unknown]
